FAERS Safety Report 17443847 (Version 1)
Quarter: 2020Q1

REPORT INFORMATION
  Report Type: Spontaneous
  Country: US (occurrence: US)
  Receive Date: 20200207
  Receipt Date: 20200207
  Transmission Date: 20200409
  Serious: No
  Sender: FDA-Public Use
  Company Number: None

PATIENT
  Age: 73 Year
  Sex: Female

DRUGS (1)
  1. PROLIA [Suspect]
     Active Substance: DENOSUMAB
     Route: 058
     Dates: start: 2019

REACTIONS (3)
  - Intercepted product dispensing error [None]
  - Intercepted wrong patient selected [None]
  - Product prescribing error [None]

NARRATIVE: CASE EVENT DATE: 20200128
